FAERS Safety Report 9702934 (Version 2)
Quarter: 2014Q2

REPORT INFORMATION
  Report Type: Spontaneous
  Country: JP (occurrence: JP)
  Receive Date: 20131121
  Receipt Date: 20140516
  Transmission Date: 20141212
  Serious: Yes (Hospitalization, Other)
  Sender: FDA-Public Use
  Company Number: JP-MERCK-1311JPN007515

PATIENT
  Age: 65 Year
  Sex: Male

DRUGS (12)
  1. GLACTIV [Suspect]
     Indication: TYPE 2 DIABETES MELLITUS
     Dosage: 50 MG, QAM
     Route: 048
     Dates: start: 20091215, end: 20130820
  2. GLACTIV [Suspect]
     Dosage: 50 MG, QAM
     Route: 048
     Dates: start: 20130826
  3. ZETIA TABLETS 10MG [Concomitant]
     Dosage: UNK
     Route: 048
     Dates: start: 20100415, end: 20130820
  4. METGLUCO [Concomitant]
     Dosage: UNK
     Dates: start: 20120312, end: 20130416
  5. METGLUCO [Concomitant]
     Dosage: UNK
     Dates: start: 20120417, end: 20130820
  6. PLAVIX [Concomitant]
     Dosage: UNK
     Dates: start: 20111219, end: 20130820
  7. DORNER [Concomitant]
     Dosage: UNK
     Dates: start: 20120714, end: 20130820
  8. MAGLAX (MAGNESIUM OXIDE) [Concomitant]
     Dosage: UNK
  9. GLUBES [Concomitant]
     Dosage: UNK
     Dates: start: 20130603, end: 20130820
  10. DIOVAN [Concomitant]
     Dosage: UNK
     Dates: start: 20090119, end: 20130820
  11. NATRIX [Concomitant]
     Dosage: UNK
     Dates: start: 20121225, end: 20130121
  12. NATRIX [Concomitant]
     Dosage: UNK
     Dates: start: 20130122, end: 20130820

REACTIONS (4)
  - Lung neoplasm malignant [Unknown]
  - Diarrhoea [Unknown]
  - Constipation [Unknown]
  - Dizziness [Unknown]
